FAERS Safety Report 4582445-2 (Version None)
Quarter: 2005Q1

REPORT INFORMATION
  Report Type: 
  Country: None (occurrence: None)
  Receive Date: 20050125
  Receipt Date: 20041004
  Transmission Date: 20050727
  Serious: No
  Sender: FDA-Public Use
  Company Number: REM_00068_2004

PATIENT
  Age: 42 Year
  Sex: Male
  Weight: 75 kg

DRUGS (6)
  1. REMODULIN [Suspect]
     Indication: PULMONARY HYPERTENSION
     Dosage: 12 NG/KG/MIN CONTINOUS SC
     Route: 058
     Dates: start: 20040701, end: 20040913
  2. REMODULIN [Suspect]
     Indication: PULMONARY HYPERTENSION
     Dosage: 11 NG/KG/MIN CONTINOUS SC
     Route: 058
     Dates: start: 20040913, end: 20040923
  3. XANAX [Concomitant]
  4. LASIX [Concomitant]
  5. PERCOCET [Concomitant]
  6. REMODULIN [Suspect]
     Indication: PULMONARY HYPERTENSION
     Dosage: 12.5 NG/KG/MIN CONTINOUS SC
     Route: 058
     Dates: start: 20040923

REACTIONS (2)
  - PAIN IN EXTREMITY [None]
  - PARAESTHESIA [None]
